FAERS Safety Report 6080556-6 (Version None)
Quarter: 2009Q1

REPORT INFORMATION
  Report Type: 
  Country: None (occurrence: None)
  Receive Date: 20090217
  Receipt Date: 20090212
  Transmission Date: 20090719
  Serious: Yes (Disabling)
  Sender: FDA-Public Use
  Company Number: B0553099A

PATIENT
  Age: 64 Year
  Sex: Female
  Weight: 45 kg

DRUGS (3)
  1. ZANTAC [Suspect]
     Indication: GASTRITIS
     Dosage: 150MG TWICE PER DAY
     Route: 048
     Dates: start: 20081210, end: 20081211
  2. MICARDIS [Concomitant]
     Dosage: 40MG PER DAY
     Route: 048
     Dates: start: 20080322
  3. FLUITRAN [Concomitant]
     Dosage: 2MG PER DAY
     Route: 048
     Dates: start: 20080604

REACTIONS (2)
  - HEPATITIS [None]
  - JAUNDICE [None]
